FAERS Safety Report 6252479-0 (Version None)
Quarter: 2009Q3

REPORT INFORMATION
  Report Type: 
  Country: None (occurrence: None)
  Receive Date: 20090701
  Receipt Date: 20090626
  Transmission Date: 20100115
  Serious: Yes (Life-Threatening, Hospitalization)
  Sender: FDA-Public Use
  Company Number: US-BRISTOL-MYERS SQUIBB COMPANY-14682884

PATIENT

DRUGS (1)
  1. DEFINITY [Suspect]

REACTIONS (1)
  - TORSADE DE POINTES [None]
